FAERS Safety Report 19388122 (Version 2)
Quarter: 2021Q2

REPORT INFORMATION
  Report Type: Spontaneous
  Country: AU (occurrence: AU)
  Receive Date: 20210608
  Receipt Date: 20210619
  Transmission Date: 20210717
  Serious: Yes (Hospitalization, Other)
  Sender: FDA-Public Use
  Company Number: AU-ACCORD-227146

PATIENT
  Age: 64 Year
  Sex: Male

DRUGS (5)
  1. ROSUVASTATIN. [Suspect]
     Active Substance: ROSUVASTATIN
     Indication: HYPERCHOLESTEROLAEMIA
     Dosage: 20 MG
  2. OLMESARTAN [Concomitant]
     Active Substance: OLMESARTAN
  3. ALLOPURINOL. [Concomitant]
     Active Substance: ALLOPURINOL
  4. HYDROCHLOROTHIAZIDE. [Concomitant]
     Active Substance: HYDROCHLOROTHIAZIDE
  5. SPIRONOLACTONE. [Concomitant]
     Active Substance: SPIRONOLACTONE

REACTIONS (3)
  - Dermatomyositis [Recovering/Resolving]
  - Myocarditis [Recovering/Resolving]
  - Troponin increased [Recovering/Resolving]
